FAERS Safety Report 13404906 (Version 1)
Quarter: 2017Q2

REPORT INFORMATION
  Report Type: Spontaneous
  Country: ES (occurrence: ES)
  Receive Date: 20170405
  Receipt Date: 20170405
  Transmission Date: 20170830
  Serious: Yes (Life-Threatening, Hospitalization)
  Sender: FDA-Public Use
  Company Number: ES-PFIZER INC-2017143123

PATIENT
  Age: 78 Year
  Sex: Male

DRUGS (6)
  1. VANDRAL RETARD [Suspect]
     Active Substance: VENLAFAXINE HYDROCHLORIDE
     Dosage: 75 MG, 1X/DAY
     Route: 048
     Dates: start: 20170301
  2. ZYPREXA [Suspect]
     Active Substance: OLANZAPINE
     Indication: DEMENTIA
     Dosage: 2.5 MG, 1X/DAY (5 MG, 0-0-1/2)
     Route: 048
     Dates: start: 20170301
  3. RISPERDAL [Suspect]
     Active Substance: RISPERIDONE
     Indication: DEMENTIA
     Dosage: 1 MG/L, 0.5-0.5-1
     Route: 048
     Dates: start: 20170301
  4. SEGURIL [Concomitant]
     Active Substance: FUROSEMIDE
     Indication: HYPERTENSION
     Dosage: 40 MG, 1X/DAY
     Route: 048
     Dates: start: 20160216
  5. ALPRAZOLAM NORMON [Suspect]
     Active Substance: ALPRAZOLAM
     Dosage: REDUCED DOSE
     Route: 048
     Dates: start: 201703
  6. ALPRAZOLAM NORMON [Suspect]
     Active Substance: ALPRAZOLAM
     Indication: DEMENTIA
     Dosage: 0.5 MG, 0-1-2
     Route: 048
     Dates: start: 20170301, end: 20170317

REACTIONS (4)
  - Overdose [Recovering/Resolving]
  - Sedation [Recovering/Resolving]
  - General physical health deterioration [Recovering/Resolving]
  - Fall [Recovered/Resolved]

NARRATIVE: CASE EVENT DATE: 201703
